FAERS Safety Report 7815637-7 (Version None)
Quarter: 2011Q4

REPORT INFORMATION
  Report Type: 
  Country: None (occurrence: None)
  Receive Date: 20111005
  Receipt Date: 20110923
  Transmission Date: 20120403
  Serious: Yes (Hospitalization)
  Sender: FDA-Public Use
  Company Number: 2011028980

PATIENT
  Age: 51 Year
  Sex: Male
  Weight: 150 kg

DRUGS (24)
  1. HIZENTRA [Suspect]
  2. NORCO [Concomitant]
  3. PRILOSEC [Concomitant]
  4. HIZENTRA [Suspect]
     Dosage: SEE IMGE
     Route: 058
     Dates: start: 20110921, end: 20110921
  5. HIZENTRA [Suspect]
     Dosage: SEE IMGE
     Route: 058
     Dates: start: 20110531
  6. HIZENTRA [Suspect]
  7. HIZENTRA [Suspect]
  8. HIZENTRA [Suspect]
  9. ATENOLOL [Concomitant]
  10. DIAZEPAM [Concomitant]
  11. FLEXERIL [Concomitant]
  12. HIZENTRA [Suspect]
  13. TESTOSTERONE CYPRIONATE (TESTOSTERONE) [Concomitant]
  14. LISINOPRIL [Concomitant]
  15. NABUMETONE [Concomitant]
  16. OXYCODONE HCL [Concomitant]
  17. BACTRIM [Concomitant]
  18. LIDODERM [Concomitant]
  19. HIZENTRA [Suspect]
  20. HIZENTRA [Suspect]
  21. HIZENTRA [Suspect]
  22. OXYGEN (OXYGEN) [Concomitant]
  23. EFFEXOR XR [Concomitant]
  24. CYANOCOBALAMIN [Concomitant]

REACTIONS (5)
  - SKIN INFECTION [None]
  - PAIN [None]
  - INFUSION SITE OEDEMA [None]
  - OEDEMA PERIPHERAL [None]
  - FATIGUE [None]
